FAERS Safety Report 4623462-3 (Version None)
Quarter: 2005Q1

REPORT INFORMATION
  Report Type: 
  Country: None (occurrence: None)
  Receive Date: 20050330
  Receipt Date: 20050308
  Transmission Date: 20050727
  Serious: No
  Sender: FDA-Public Use
  Company Number: 2005CG00595

PATIENT
  Sex: Male

DRUGS (2)
  1. NAROPIN [Suspect]
     Indication: LOCAL ANAESTHESIA
     Dates: start: 20041101, end: 20041101
  2. CLONIDINE [Suspect]
     Indication: LOCAL ANAESTHESIA
     Dates: start: 20041101, end: 20041101

REACTIONS (3)
  - PAPILLOEDEMA [None]
  - POST PROCEDURAL COMPLICATION [None]
  - VISUAL ACUITY REDUCED [None]
